FAERS Safety Report 4983149-4 (Version None)
Quarter: 2006Q2

REPORT INFORMATION
  Report Type: 
  Country: None (occurrence: None)
  Receive Date: 20060419
  Receipt Date: 20060411
  Transmission Date: 20061013
  Serious: Yes (Death)
  Sender: FDA-Public Use
  Company Number: S06-FRA-01309-01

PATIENT
  Sex: Male
  Weight: 85 kg

DRUGS (4)
  1. SEROPLEX                          (ESCITALOPRAM) [Suspect]
     Dates: start: 20050101
  2. MEPRONIZINE [Suspect]
  3. NOCETONE               (OXETORONE FUMARATE) [Suspect]
  4. LEXOMIL                  (BROMAZEPAM) [Suspect]

REACTIONS (2)
  - COMPLETED SUICIDE [None]
  - MULTIPLE DRUG OVERDOSE [None]
